FAERS Safety Report 7328365 (Version 6)
Quarter: 2013Q1

REPORT INFORMATION
  Report Type: Spontaneous
  Country: US (occurrence: US)
  Receive Date: 20100323
  Receipt Date: 20130315
  Transmission Date: 20140127
  Serious: Yes (Hospitalization)
  Sender: FDA-Public Use
  Company Number: US-BAYER-201017070NA

PATIENT
  Age: 13 Year
  Sex: Female
  Weight: 73 kg

DRUGS (21)
  1. YAZ [Suspect]
     Indication: ACNE
     Dosage: UNK
     Route: 048
  2. YAZ [Suspect]
     Indication: MENSTRUATION IRREGULAR
  3. YASMIN [Suspect]
     Indication: ACNE
     Route: 048
     Dates: start: 200708
  4. YASMIN [Suspect]
     Indication: MENSTRUATION IRREGULAR
  5. OCELLA [Suspect]
     Indication: ACNE
     Route: 048
     Dates: start: 200902, end: 200905
  6. OCELLA [Suspect]
     Indication: MENSTRUATION IRREGULAR
  7. NSAID^S [Concomitant]
     Indication: PYREXIA
  8. NSAID^S [Concomitant]
     Indication: MUSCLE SPASMS
  9. CEFALEXIN [Concomitant]
  10. AZITHROMYCIN [Concomitant]
  11. AMOXICILLIN [Concomitant]
     Indication: SINUSITIS
  12. AMOXICILLIN [Concomitant]
     Indication: NASOPHARYNGITIS
  13. NASONEX [Concomitant]
  14. ACCUTANE [Concomitant]
  15. MEDROXYPROGESTERONE [Concomitant]
  16. BREVOXYL [Concomitant]
     Indication: ACNE
  17. TRIAMCINOLONE [Concomitant]
  18. CLARAVIS [Concomitant]
  19. FLUCONAZOLE [Concomitant]
  20. CARMOL-20 [Concomitant]
  21. SALICYLIC ACID [Concomitant]

REACTIONS (6)
  - Deep vein thrombosis [Recovered/Resolved]
  - Acne [Recovered/Resolved]
  - Menstrual disorder [Not Recovered/Not Resolved]
  - Local swelling [Recovered/Resolved]
  - Pain in extremity [Recovered/Resolved]
  - Off label use [None]
